FAERS Safety Report 4866916-7 (Version None)
Quarter: 2005Q4

REPORT INFORMATION
  Report Type: 
  Country: None (occurrence: None)
  Receive Date: 20051222
  Receipt Date: 20051212
  Transmission Date: 20060501
  Serious: Yes (Death, Other)
  Sender: FDA-Public Use
  Company Number: 2005-10-0305

PATIENT
  Age: 58 Year
  Sex: Female

DRUGS (12)
  1. TEMODAL [Suspect]
     Indication: GLIOMA
     Dosage: 140 MG QD ORAL
     Route: 048
     Dates: start: 20050824, end: 20050925
  2. RADIATION THERAPY [Concomitant]
  3. WARFARIN [Concomitant]
  4. MEDROL [Concomitant]
  5. NEXIUM [Concomitant]
  6. TRIMONIL [Concomitant]
  7. BENSYLPENICILLIN [Concomitant]
  8. LAKTULOSE ^DAK^ [Concomitant]
  9. AFIPRAN (METOCLOPRAMIDE) [Concomitant]
  10. MYCOSTATIN [Concomitant]
  11. NEBCINA [Concomitant]
  12. ZOFRAN [Concomitant]

REACTIONS (16)
  - APLASIA [None]
  - BALANCE DISORDER [None]
  - BODY TEMPERATURE INCREASED [None]
  - C-REACTIVE PROTEIN INCREASED [None]
  - CONVULSION [None]
  - FALL [None]
  - GENERAL PHYSICAL HEALTH DETERIORATION [None]
  - HAEMOGLOBIN DECREASED [None]
  - HEAD INJURY [None]
  - INTRACRANIAL TUMOUR HAEMORRHAGE [None]
  - NEUTROPHIL COUNT DECREASED [None]
  - ORAL FUNGAL INFECTION [None]
  - THERAPY NON-RESPONDER [None]
  - THROMBOCYTOPENIA [None]
  - TONSILLITIS [None]
  - WHITE BLOOD CELL COUNT DECREASED [None]
